FAERS Safety Report 12698530 (Version 1)
Quarter: 2016Q3

REPORT INFORMATION
  Report Type: Spontaneous
  Country: US (occurrence: US)
  Receive Date: 20160830
  Receipt Date: 20160830
  Transmission Date: 20161109
  Serious: No
  Sender: FDA-Public Use
  Company Number: US-JNJFOC-20160713706

PATIENT
  Age: 29 Year
  Sex: Female
  Weight: 107.05 kg

DRUGS (1)
  1. RISPERDAL CONSTA [Suspect]
     Active Substance: RISPERIDONE
     Indication: SCHIZOPHRENIA
     Route: 030
     Dates: start: 201509

REACTIONS (2)
  - Drug dose omission [Unknown]
  - Product preparation error [Unknown]

NARRATIVE: CASE EVENT DATE: 20160714
